FAERS Safety Report 8221100 (Version 2)
Quarter: 2012Q4

REPORT INFORMATION
  Report Type: 
  Country: US (occurrence: US)
  Receive Date: 20111102
  Receipt Date: 20121226
  Transmission Date: 20130627
  Serious: Yes (Congenital Anomaly, Other)
  Sender: FDA-Public Use
  Company Number: US-PFIZER INC-2011264229

PATIENT
  Sex: Male

DRUGS (2)
  1. ZOLOFT [Suspect]
     Dosage: UNK
     Route: 064
     Dates: start: 2000, end: 2012
  2. PRENATAL VITAMINS [Concomitant]
     Dosage: UNK
     Route: 064

REACTIONS (8)
  - Maternal exposure timing unspecified [Unknown]
  - Multiple cardiac defects [Unknown]
  - Hypoplastic left heart syndrome [Unknown]
  - Tricuspid valve incompetence [Unknown]
  - Coarctation of the aorta [Unknown]
  - Pulmonary malformation [Unknown]
  - Sinus arrhythmia [Unknown]
  - Ventricular hypertrophy [Unknown]
